FAERS Safety Report 4956716-1 (Version None)
Quarter: 2006Q1

REPORT INFORMATION
  Report Type: 
  Country: None (occurrence: None)
  Receive Date: 20060329
  Receipt Date: 20060321
  Transmission Date: 20060701
  Serious: Yes (Hospitalization)
  Sender: FDA-Public Use
  Company Number: ES-GLAXOSMITHKLINE-B0416730A

PATIENT
  Age: 80 Year
  Sex: Male

DRUGS (1)
  1. CEFUROXIME SODIUM [Suspect]
     Indication: RESPIRATORY TRACT INFECTION
     Dosage: 250MG TWICE PER DAY
     Route: 048

REACTIONS (7)
  - ACANTHOSIS [None]
  - EOSINOPHILIA [None]
  - ERYTHEMA [None]
  - HYPERKERATOSIS [None]
  - LEUKOCYTOSIS [None]
  - PRURITUS GENERALISED [None]
  - TYPE IV HYPERSENSITIVITY REACTION [None]
